FAERS Safety Report 5297374-9 (Version None)
Quarter: 2007Q2

REPORT INFORMATION
  Report Type: 
  Country: None (occurrence: None)
  Receive Date: 20070416
  Receipt Date: 20070403
  Transmission Date: 20071010
  Serious: Yes (Hospitalization)
  Sender: FDA-Public Use
  Company Number: PHEH2007US04212

PATIENT
  Sex: Male

DRUGS (6)
  1. LUNESTA [Concomitant]
     Indication: INSOMNIA
     Dosage: 3 MG, PRN
     Route: 048
     Dates: start: 20061201
  2. PAXIL [Suspect]
  3. CODEINE [Suspect]
     Indication: PAIN
  4. PERCOCET [Suspect]
     Indication: PAIN
  5. CYMBALTA [Concomitant]
  6. TRILEPTAL [Suspect]

REACTIONS (3)
  - GASTRIC LAVAGE [None]
  - INTENTIONAL OVERDOSE [None]
  - SUICIDE ATTEMPT [None]
